FAERS Safety Report 17033011 (Version 2)
Quarter: 2019Q4

REPORT INFORMATION
  Report Type: Spontaneous
  Country: DK (occurrence: DK)
  Receive Date: 20191114
  Receipt Date: 20191206
  Transmission Date: 20200122
  Serious: Yes (Other)
  Sender: FDA-Public Use
  Company Number: DK-MYLANLABS-2019M1073536

PATIENT
  Age: 36 Year
  Sex: Male
  Weight: 95 kg

DRUGS (11)
  1. CLOZAPIN HEXAL [Suspect]
     Active Substance: CLOZAPINE
     Indication: SCHIZOPHRENIA
     Dosage: 250 MILLIGRAM
     Route: 048
     Dates: start: 20170215, end: 20170914
  2. RISPERDAL [Suspect]
     Active Substance: RISPERIDONE
     Indication: MANIA
     Dosage: UNK
     Dates: start: 2003, end: 2006
  3. ZELDOX [Suspect]
     Active Substance: ZIPRASIDONE
     Indication: MENTAL DISORDER
     Dosage: 20 MILLIGRAM
     Route: 048
  4. DELEPSINE [Suspect]
     Active Substance: VALPROATE SODIUM
     Dosage: ,DOSIS: 2,5 ML MORGEN OG 4 ML AFTEN, STYRKE: 200 MG/MLUNK
     Route: 048
     Dates: start: 20150717
  5. SEROQUEL [Suspect]
     Active Substance: QUETIAPINE FUMARATE
     Indication: MENTAL DISORDER
     Dosage: 500 MILLIGRAM
     Route: 048
     Dates: start: 20050310
  6. DELEPSINE [Suspect]
     Active Substance: VALPROATE SODIUM
     Indication: MANIA
     Dosage: UNK UNK, BID
     Route: 048
  7. LEPONEX [Suspect]
     Active Substance: CLOZAPINE
     Indication: SCHIZOPHRENIA
     Dosage: UNK
     Route: 048
  8. CLOZAPIN HEXAL [Suspect]
     Active Substance: CLOZAPINE
     Indication: PSYCHOTIC DISORDER
     Dosage: 350 MILLIGRAM
     Route: 048
  9. DELEPSINE [Suspect]
     Active Substance: VALPROATE SODIUM
     Indication: MOOD SWINGS
     Dosage: UNK,STYRKE: 500 MG. DOSIS: 500 MG MORGEN, 1 G TIL NATTEN.
     Route: 048
     Dates: start: 20150202, end: 20170614
  10. RISPERDAL [Suspect]
     Active Substance: RISPERIDONE
     Indication: SCHIZOPHRENIA
     Dosage: UNK
  11. CLOZAPIN HEXAL [Suspect]
     Active Substance: CLOZAPINE
     Dosage: 200 MILLIGRAM
     Route: 048
     Dates: start: 20170914

REACTIONS (4)
  - Infertility [Not Recovered/Not Resolved]
  - Hyperprolactinaemia [Not Recovered/Not Resolved]
  - Testicular atrophy [Not Recovered/Not Resolved]
  - Hypogonadism male [Not Recovered/Not Resolved]

NARRATIVE: CASE EVENT DATE: 20160717
